FAERS Safety Report 5032022-4 (Version None)
Quarter: 2006Q2

REPORT INFORMATION
  Report Type: 
  Country: None (occurrence: None)
  Receive Date: 20060619
  Receipt Date: 20060602
  Transmission Date: 20061013
  Serious: Yes (Hospitalization)
  Sender: FDA-Public Use
  Company Number: GBR-2006-0002330

PATIENT
  Age: 60 Year
  Sex: Female

DRUGS (16)
  1. OXYCONTIN [Suspect]
     Dosage: ORAL
     Route: 048
  2. OXYNORM(OXYCODONE HYDROCHLORIDE) [Suspect]
     Dosage: ORAL
     Route: 048
  3. LEVOTHYROXINE SODIUM [Concomitant]
  4. LASIX [Concomitant]
  5. CORDARONE [Concomitant]
  6. MOTILIUM [Concomitant]
  7. SPASFON (TRIMETHYLPHLOROGLUCINOL, PHLOROGLUCINOL) [Concomitant]
  8. DEBRIDAT  JOUVEINAL  (TRIMEBUTINE MALEATE) [Concomitant]
  9. CLONAZEPAM [Concomitant]
  10. AMITRIPTYLINE HCL [Concomitant]
  11. ATORVASTATIN CALCIUM [Concomitant]
  12. GELOX (MAGNESIUM HYDROXIDE, ALUMINIUM SILICATE) [Concomitant]
  13. DESLORATADINE (DESLORATADINE) [Concomitant]
  14. APPROVEL (IRBESARTAN) [Concomitant]
  15. FORLAX (MACROGOL) [Concomitant]
  16. KAYEXALATE [Concomitant]

REACTIONS (2)
  - CONSTIPATION [None]
  - GASTROINTESTINAL OBSTRUCTION [None]
